FAERS Safety Report 16765961 (Version 2)
Quarter: 2019Q3

REPORT INFORMATION
  Report Type: Spontaneous
  Country: JP (occurrence: JP)
  Receive Date: 20190903
  Receipt Date: 20190910
  Transmission Date: 20191005
  Serious: Yes (Hospitalization, Other)
  Sender: FDA-Public Use
  Company Number: JP-ASTELLAS-2019JP018569

PATIENT
  Age: 8 Decade
  Sex: Male

DRUGS (4)
  1. BAKTAR [Suspect]
     Active Substance: SULFAMETHOXAZOLE\TRIMETHOPRIM
     Indication: PRODUCT USED FOR UNKNOWN INDICATION
     Dosage: UNK UNK, UNKNOWN FREQ.
     Route: 048
     Dates: end: 20190823
  2. PROGRAF [Suspect]
     Active Substance: TACROLIMUS\TACROLIMUS ANHYDROUS
     Indication: RHEUMATOID VASCULITIS
     Dosage: 3 MG/DAY, UNKNOWN FREQ.
     Route: 048
     Dates: end: 20190823
  3. PREDNISOLONE. [Suspect]
     Active Substance: PREDNISOLONE
     Indication: PRODUCT USED FOR UNKNOWN INDICATION
     Dosage: 30 MG/DAY, UNKNOWN FREQ.
     Route: 048
  4. VFEND [Interacting]
     Active Substance: VORICONAZOLE
     Indication: ORAL CANDIDIASIS
     Route: 048
     Dates: end: 20190823

REACTIONS (5)
  - Renal impairment [Recovered/Resolved]
  - Drug interaction [Unknown]
  - Oral candidiasis [Recovered/Resolved]
  - Drug level increased [Recovered/Resolved]
  - Malaise [Recovered/Resolved]

NARRATIVE: CASE EVENT DATE: 20190823
